FAERS Safety Report 6827058-4 (Version None)
Quarter: 2010Q3

REPORT INFORMATION
  Report Type: 
  Country: None (occurrence: None)
  Receive Date: 20100709
  Receipt Date: 20100701
  Transmission Date: 20110219
  Serious: Yes (Life-Threatening, Hospitalization)
  Sender: FDA-Public Use
  Company Number: JP-MERCK-1007USA00311

PATIENT
  Age: 65 Year
  Sex: Male

DRUGS (5)
  1. ZETIA [Suspect]
     Route: 048
  2. ASPIRIN [Concomitant]
     Route: 065
  3. VASOTEC [Concomitant]
     Route: 048
  4. WARFARIN POTASSIUM [Concomitant]
     Route: 065
  5. PROBUCOL [Concomitant]
     Route: 065

REACTIONS (2)
  - GASTROENTERITIS [None]
  - MECHANICAL ILEUS [None]
